FAERS Safety Report 14226115 (Version 2)
Quarter: 2018Q1

REPORT INFORMATION
  Report Type: Spontaneous
  Country: FR (occurrence: FR)
  Receive Date: 20171127
  Receipt Date: 20180131
  Transmission Date: 20180508
  Serious: Yes (Hospitalization, Other)
  Sender: FDA-Public Use
  Company Number: FR-PFIZER INC-2017498263

PATIENT
  Age: 49 Year
  Sex: Male

DRUGS (9)
  1. CIFLOX [Suspect]
     Active Substance: CIPROFLOXACIN
     Dosage: 1 G, DAILY
     Route: 042
     Dates: start: 20171031, end: 20171107
  2. CEFOTAXIME SODIUM [Suspect]
     Active Substance: CEFOTAXIME SODIUM
     Dosage: 12 G, DAILY
     Route: 042
     Dates: start: 20171024, end: 20171031
  3. ACUPAN [Concomitant]
     Active Substance: NEFOPAM HYDROCHLORIDE
     Dosage: UNK
     Dates: start: 20171012, end: 20171107
  4. AMLOR [Suspect]
     Active Substance: AMLODIPINE BESYLATE
     Indication: HYPERTENSION
     Dosage: UNK
     Route: 048
     Dates: start: 20171014, end: 20171107
  5. CEFOTAXIME SODIUM [Suspect]
     Active Substance: CEFOTAXIME SODIUM
     Indication: INFECTION
     Dosage: 2 G, DAILY
     Route: 042
     Dates: start: 20171017, end: 20171024
  6. CIFLOX [Suspect]
     Active Substance: CIPROFLOXACIN
     Indication: INFECTION
     Dosage: 1.5 G, DAILY
     Route: 042
     Dates: start: 20171024, end: 20171031
  7. PARACETAMOL [Suspect]
     Active Substance: ACETAMINOPHEN
     Indication: INFECTION
     Dosage: UNK
     Dates: start: 20171012, end: 20171031
  8. CEFOTAXIME SODIUM [Suspect]
     Active Substance: CEFOTAXIME SODIUM
     Dosage: 8 G, DAILY
     Route: 042
     Dates: start: 20171031, end: 20171107
  9. KETOPROFEN. [Concomitant]
     Active Substance: KETOPROFEN
     Dosage: UNK
     Dates: start: 20171015, end: 20171015

REACTIONS (2)
  - Mixed liver injury [Recovered/Resolved]
  - Agranulocytosis [Recovered/Resolved]

NARRATIVE: CASE EVENT DATE: 20171015
